FAERS Safety Report 4579537-0 (Version None)
Quarter: 2005Q1

REPORT INFORMATION
  Report Type: 
  Country: None (occurrence: None)
  Receive Date: 20050210
  Receipt Date: 20050204
  Transmission Date: 20050727
  Serious: Yes (Other)
  Sender: FDA-Public Use
  Company Number: 004046

PATIENT
  Age: 28 Year
  Sex: Female
  Weight: 83.4 kg

DRUGS (1)
  1. MEDROXYPROGESTERONE ACETATE [Suspect]
     Indication: AMENORRHOEA
     Dosage: 1.00 TABLET, QD, ORAL
     Route: 048
     Dates: start: 20040413, end: 20040418

REACTIONS (5)
  - CERVICAL POLYP [None]
  - MENOMETRORRHAGIA [None]
  - MENSTRUATION IRREGULAR [None]
  - URTICARIA [None]
  - UTERINE LEIOMYOMA [None]
